FAERS Safety Report 9251614 (Version 2)
Quarter: 2013Q3

REPORT INFORMATION
  Report Type: Spontaneous
  Country: US (occurrence: US)
  Receive Date: 20130424
  Receipt Date: 20130705
  Transmission Date: 20140515
  Serious: Yes (Hospitalization, Other)
  Sender: FDA-Public Use
  Company Number: US-ASTRAZENECA-2013SE27346

PATIENT
  Age: 48 Year
  Sex: Female

DRUGS (20)
  1. NEXIUM [Suspect]
     Indication: GASTROOESOPHAGEAL REFLUX DISEASE
     Dosage: ONCE
     Route: 048
  2. NEXIUM [Suspect]
     Indication: GASTROOESOPHAGEAL REFLUX DISEASE
     Route: 048
     Dates: start: 20050625
  3. NEXIUM [Suspect]
     Indication: GASTROOESOPHAGEAL REFLUX DISEASE
     Route: 048
     Dates: start: 20120130
  4. MELOXICAM [Concomitant]
     Dosage: 7.5 DAILY
  5. MELOXICAM [Concomitant]
     Dates: start: 20091229
  6. BUSPAR [Concomitant]
     Dosage: 1 TABLET TWICE A DAY
     Route: 048
     Dates: start: 20090226
  7. CLONAZEPAM [Concomitant]
     Dosage: 0.5 DAILY
  8. PAXIL [Concomitant]
     Dosage: 10 DAILY
  9. NAPROXEN [Concomitant]
     Dates: start: 20110706
  10. VITAMIN B12 [Concomitant]
     Dosage: 2 MONTHLY
  11. LORTAB [Concomitant]
     Dosage: 10-500MG 1 ORAL TWO TIMES DAILY
     Route: 048
     Dates: start: 20110308
  12. SINGULAIR [Concomitant]
     Route: 048
     Dates: start: 20100713
  13. DEPO-MEDROL [Concomitant]
  14. FLONASE [Concomitant]
     Dosage: 50 MCG/ACT, 2 SPRAYS PER NOSTRIL ONCE DAILY
     Dates: start: 20101109
  15. PREVACID [Concomitant]
     Route: 048
     Dates: start: 20071203
  16. PROPOX-N/APAP [Concomitant]
     Dosage: TAKE 1 TO 2 TABLETS BY MOUTH EVERY 4 TO 6 HOURS AS NEEDED
     Dates: start: 20090928
  17. HYDROCO/APAP [Concomitant]
     Indication: PAIN
     Dosage: TAKE 1 TO 2 TABLETS BY MOUTH EVERY 4 TO 6 HOURS AS NEEDED
     Dates: start: 20090928
  18. TRAMADOL [Concomitant]
     Indication: PAIN
     Dosage: TAKE 1 TO 2 TABLETS BY MOUTH EVERY 4 TO 6 HOURS AS NEEDED
     Dates: start: 20091203
  19. KAPIDEX [Concomitant]
     Route: 048
     Dates: start: 20100427
  20. OMEPRAZOLE [Concomitant]
     Dates: start: 20070503

REACTIONS (18)
  - Hepatic necrosis [Unknown]
  - Cholelithiasis [Unknown]
  - Small intestine carcinoma [Unknown]
  - Osteoporosis [Unknown]
  - Bone disorder [Unknown]
  - Multiple fractures [Unknown]
  - Arthritis [Unknown]
  - Gait disturbance [Unknown]
  - Gastrointestinal disorder [Unknown]
  - Osteoarthritis [Unknown]
  - Intervertebral disc degeneration [Unknown]
  - Coeliac disease [Unknown]
  - Metabolic syndrome [Unknown]
  - Obesity [Unknown]
  - Goitre [Unknown]
  - Meniscus injury [Unknown]
  - Arthralgia [Unknown]
  - Depression [Unknown]
